FAERS Safety Report 7029932-5 (Version None)
Quarter: 2010Q4

REPORT INFORMATION
  Report Type: 
  Country: None (occurrence: None)
  Receive Date: 20101006
  Receipt Date: 20100811
  Transmission Date: 20110411
  Serious: No
  Sender: FDA-Public Use
  Company Number: US-BAYER-200828477NA

PATIENT
  Sex: Female

DRUGS (2)
  1. MENOSTAR [Suspect]
     Indication: PRODUCT USED FOR UNKNOWN INDICATION
     Dosage: ESTRADIOL CONTINUOUS RELEASE
     Route: 062
     Dates: start: 20070701
  2. MENOSTAR [Suspect]
     Dosage: ESTRADIOL CONTINUOUS RELEASE
     Route: 062
     Dates: start: 20070701

REACTIONS (3)
  - HOT FLUSH [None]
  - IRRITABILITY [None]
  - MENOPAUSAL SYMPTOMS [None]
